FAERS Safety Report 8821517 (Version 1)
Quarter: 2012Q4

REPORT INFORMATION
  Report Type: 
  Country: JP (occurrence: JP)
  Receive Date: 20121002
  Receipt Date: 20121002
  Transmission Date: 20130627
  Serious: Yes (Hospitalization)
  Sender: FDA-Public Use
  Company Number: JP-PFIZER INC-2012243089

PATIENT

DRUGS (5)
  1. LYRICA [Suspect]
     Indication: SPINAL OSTEOARTHRITIS
     Dosage: UNK
     Route: 048
     Dates: start: 201202, end: 201206
  2. LIPITOR [Concomitant]
     Dosage: UNK
     Route: 048
     Dates: end: 201206
  3. CELECOX [Concomitant]
     Indication: SPINAL OSTEOARTHRITIS
     Dosage: UNK
     Route: 048
     Dates: end: 201206
  4. LOXONIN [Concomitant]
     Indication: SPINAL OSTEOARTHRITIS
     Dosage: UNK
     Route: 048
     Dates: end: 201206
  5. PREDONINE [Concomitant]
     Dosage: UNK
     Route: 048
     Dates: end: 201206

REACTIONS (2)
  - Adrenal insufficiency [Recovered/Resolved]
  - Decreased appetite [Recovered/Resolved]
